FAERS Safety Report 25869396 (Version 4)
Quarter: 2025Q4

REPORT INFORMATION
  Report Type: Spontaneous
  Country: CA (occurrence: CA)
  Receive Date: 20251001
  Receipt Date: 20251111
  Transmission Date: 20260118
  Serious: Yes (Hospitalization)
  Sender: PFIZER
  Company Number: CA-PFIZER INC-202500191984

PATIENT
  Age: 32 Year
  Sex: Female

DRUGS (1)
  1. RUXIENCE [Suspect]
     Active Substance: RITUXIMAB-PVVR
     Indication: Multiple sclerosis
     Dosage: 1000 MG, DAY 1 AND DAY 15, Q6 MONTHS
     Route: 042
     Dates: start: 20250424

REACTIONS (3)
  - Myositis [Recovering/Resolving]
  - Disseminated enteroviral infection [Recovering/Resolving]
  - Meningitis enteroviral [Recovering/Resolving]

NARRATIVE: CASE EVENT DATE: 20250101
